FAERS Safety Report 5154111-6 (Version None)
Quarter: 2006Q4

REPORT INFORMATION
  Report Type: 
  Country: None (occurrence: None)
  Receive Date: 20061120
  Receipt Date: 20060929
  Transmission Date: 20070319
  Serious: Yes (Hospitalization, Other)
  Sender: FDA-Public Use
  Company Number: JP-MERCK-0610USA02999

PATIENT
  Age: 92 Year
  Sex: Female

DRUGS (13)
  1. PEPCID [Suspect]
     Route: 048
     Dates: end: 20050901
  2. PEPCID [Suspect]
     Route: 048
     Dates: start: 20051001, end: 20060823
  3. PEPCID [Suspect]
     Route: 065
  4. HERBESSER [Concomitant]
     Route: 048
  5. SIGMART [Concomitant]
     Route: 048
  6. WARFARIN SODIUM [Concomitant]
     Route: 048
  7. ALLOPURINOL [Concomitant]
     Route: 048
  8. ARTIST [Concomitant]
     Route: 048
  9. TRANDOLAPRIL [Concomitant]
     Route: 048
  10. FRANDOL [Concomitant]
     Route: 048
  11. BIOFERMIN [Concomitant]
     Route: 048
  12. LASIX [Concomitant]
     Route: 048
  13. ALDACTONE [Concomitant]
     Route: 048

REACTIONS (6)
  - ABNORMAL BEHAVIOUR [None]
  - ADVERSE EVENT [None]
  - CARDIAC FAILURE [None]
  - CONFUSIONAL STATE [None]
  - DEPRESSION [None]
  - RENAL IMPAIRMENT [None]
